FAERS Safety Report 10161684 (Version 3)
Quarter: 2014Q2

REPORT INFORMATION
  Report Type: Spontaneous
  Country: IT (occurrence: None)
  Receive Date: 20140507
  Receipt Date: 20140606
  Transmission Date: 20141212
  Serious: Yes (Hospitalization)
  Sender: FDA-Public Use
  Company Number: AUR-APL-2014-05283

PATIENT
  Age: 30 Year
  Sex: Male

DRUGS (2)
  1. RAMIPRIL [Suspect]
     Indication: HYPERTENSION
     Dosage: (100 MG,TOTAL)
     Route: 048
     Dates: start: 20140329, end: 20140329
  2. SERTRALINE [Suspect]
     Indication: PRODUCT USED FOR UNKNOWN INDICATION
     Dosage: (1500 MG,TOTAL)
     Route: 048
     Dates: start: 20140329, end: 20140329

REACTIONS (3)
  - Drug abuse [None]
  - Psychomotor hyperactivity [None]
  - Depression [None]
